FAERS Safety Report 8205463 (Version 3)
Quarter: 2014Q1

REPORT INFORMATION
  Report Type: Spontaneous
  Country: US (occurrence: US)
  Receive Date: 20111028
  Receipt Date: 20140206
  Transmission Date: 20141002
  Serious: No
  Sender: FDA-Public Use
  Company Number: US-JNJFOC-20111009747

PATIENT
  Sex: Male
  Weight: 76.2 kg

DRUGS (6)
  1. DURAGESIC [Suspect]
     Indication: PAIN
     Route: 062
  2. DURAGESIC [Suspect]
     Indication: PAIN
     Dosage: 125MCG/PATCH/100MCG+25MCG/1 IN 72 HOURS/TD
     Route: 062
     Dates: end: 2010
  3. DURAGESIC [Suspect]
     Indication: PAIN
     Dosage: 150MCG/PATCH/100MCG+50MCG/1 IN 72 HOURS/TD
     Route: 062
     Dates: start: 2010
  4. DURAGESIC [Suspect]
     Indication: PAIN
     Route: 062
     Dates: start: 1998
  5. DURAGESIC [Suspect]
     Indication: PAIN
     Dosage: 125MCG/PATCH/100MCG+25MCG/1 IN 72 HOURS/TD
     Route: 062
  6. DURAGESIC [Suspect]
     Indication: PAIN
     Route: 062

REACTIONS (6)
  - Drug ineffective [Recovered/Resolved]
  - Anxiety [Unknown]
  - Neuralgia [Unknown]
  - Drug prescribing error [Not Recovered/Not Resolved]
  - Incorrect dosage administered [Not Recovered/Not Resolved]
  - Product adhesion issue [Unknown]
